FAERS Safety Report 4343260-8 (Version None)
Quarter: 2004Q1

REPORT INFORMATION
  Report Type: 
  Country: None (occurrence: None)
  Receive Date: 20040325
  Receipt Date: 20031224
  Transmission Date: 20041129
  Serious: No
  Sender: FDA-Public Use
  Company Number: USA031153247

PATIENT
  Age: 85 Year
  Sex: Female

DRUGS (7)
  1. FORTEO [Suspect]
     Indication: OSTEOPOROSIS
     Dosage: 20 UG/DAY
     Dates: start: 20030401
  2. PREDNISONE [Concomitant]
  3. CORGARD [Concomitant]
  4. ASPIRIN [Concomitant]
  5. HYZAAR [Concomitant]
  6. ACIPHEX [Concomitant]
  7. MULTI-VITAMIN [Concomitant]

REACTIONS (4)
  - ABDOMINAL PAIN [None]
  - BACK PAIN [None]
  - BLOOD PRESSURE INCREASED [None]
  - FREQUENT BOWEL MOVEMENTS [None]
